FAERS Safety Report 8900673 (Version 1)
Quarter: 2012Q4

REPORT INFORMATION
  Report Type: 
  Country: DE (occurrence: DE)
  Receive Date: 20121109
  Receipt Date: 20121109
  Transmission Date: 20130627
  Serious: Yes (Hospitalization, Congenital Anomaly)
  Sender: FDA-Public Use
  Company Number: DE-MYLANLABS-2012S1022438

PATIENT
  Age: 0 Year
  Sex: Male
  Weight: 2.73 kg

DRUGS (2)
  1. AZATHIOPRINE [Suspect]
     Route: 064
     Dates: start: 20090705, end: 20100319
  2. PREDNISOLONE [Concomitant]
     Route: 064
     Dates: start: 20090705, end: 20100319

REACTIONS (4)
  - Atrial septal defect [Unknown]
  - Exposure during pregnancy [Recovered/Resolved]
  - Hypoglycaemia neonatal [Unknown]
  - Neonatal respiratory distress syndrome [Unknown]
